FAERS Safety Report 11538508 (Version 2)
Quarter: 2015Q4

REPORT INFORMATION
  Report Type: Report from Study
  Country: FR (occurrence: FR)
  Receive Date: 20150922
  Receipt Date: 20151019
  Transmission Date: 20160304
  Serious: Yes (Other)
  Sender: FDA-Public Use
  Company Number: FR-ABBVIE-15P-056-1467888-00

PATIENT
  Age: 71 Year
  Sex: Male

DRUGS (1)
  1. DUODOPA [Suspect]
     Active Substance: CARBIDOPA\LEVODOPA
     Indication: PARKINSON^S DISEASE
     Dosage: 2.3ML/HR
     Route: 065
     Dates: start: 20150831

REACTIONS (2)
  - Fall [Recovered/Resolved]
  - Freezing phenomenon [Recovered/Resolved]

NARRATIVE: CASE EVENT DATE: 20150916
